FAERS Safety Report 16374546 (Version 1)
Quarter: 2019Q2

REPORT INFORMATION
  Report Type: Other
  Country: SG (occurrence: SG)
  Receive Date: 20190530
  Receipt Date: 20190530
  Transmission Date: 20190711
  Serious: Yes (Hospitalization)
  Sender: FDA-Public Use
  Company Number: SG-B. BRAUN MEDICAL INC.-2067614

PATIENT
  Age: 78 Year
  Sex: Male

DRUGS (1)
  1. CEFTAZIDIME AND DEXTROSE [Suspect]
     Active Substance: CEFTAZIDIME

REACTIONS (3)
  - Myoclonus [None]
  - Neurotoxicity [None]
  - Ataxia [None]
